FAERS Safety Report 7819754-7 (Version None)
Quarter: 2011Q4

REPORT INFORMATION
  Report Type: 
  Country: None (occurrence: None)
  Receive Date: 20111018
  Receipt Date: 20110616
  Transmission Date: 20120403
  Serious: No
  Sender: FDA-Public Use
  Company Number: US-ASTRAZENECA-2011SE36649

PATIENT
  Age: 59 Year
  Sex: Male
  Weight: 79.4 kg

DRUGS (3)
  1. SYMBICORT [Suspect]
     Route: 055
  2. PROAIR HFA [Concomitant]
  3. VENTOLIN [Concomitant]

REACTIONS (3)
  - WRONG DRUG ADMINISTERED [None]
  - ASTHMA [None]
  - DRUG DOSE OMISSION [None]
